FAERS Safety Report 4320031-X (Version None)
Quarter: 2004Q1

REPORT INFORMATION
  Report Type: 
  Country: None (occurrence: None)
  Receive Date: 20040319
  Receipt Date: 20040311
  Transmission Date: 20041129
  Serious: Yes (Disabling)
  Sender: FDA-Public Use
  Company Number: WAES 0403USA01237

PATIENT
  Age: 40 Year
  Sex: Female
  Weight: 130 kg

DRUGS (10)
  1. ASPIRIN [Concomitant]
     Dates: start: 19980101, end: 20020101
  2. CELEBREX [Concomitant]
     Indication: ARTHRITIS
     Dates: start: 19980101, end: 20020101
  3. ANTIVERT [Concomitant]
     Indication: VERTIGO
  4. RELAFEN [Concomitant]
     Indication: ARTHRALGIA
  5. NAPROXEN [Concomitant]
     Dates: start: 19980101, end: 20020101
  6. VIOXX [Suspect]
     Indication: RHEUMATOID ARTHRITIS
     Route: 048
     Dates: start: 20000301, end: 20020201
  7. VIOXX [Suspect]
     Route: 048
     Dates: start: 20000301, end: 20020201
  8. VIOXX [Suspect]
     Route: 048
     Dates: start: 20000301, end: 20020201
  9. MERIDIA [Concomitant]
     Indication: WEIGHT
  10. AMBIEN [Concomitant]
     Indication: SLEEP DISORDER

REACTIONS (12)
  - ANGINA PECTORIS [None]
  - ANXIETY [None]
  - ARTHROPATHY [None]
  - CARDIAC DISORDER [None]
  - CARDIAC FAILURE CONGESTIVE [None]
  - DEPRESSION [None]
  - EMOTIONAL DISTRESS [None]
  - GASTRIC DISORDER [None]
  - GASTRIC ULCER [None]
  - HYPERTENSION [None]
  - INJURY [None]
  - PRESCRIBED OVERDOSE [None]
